FAERS Safety Report 9836743 (Version 1)
Quarter: 2014Q1

REPORT INFORMATION
  Report Type: Spontaneous
  Country: US (occurrence: US)
  Receive Date: 20140123
  Receipt Date: 20140123
  Transmission Date: 20141002
  Serious: Yes (Life-Threatening)
  Sender: FDA-Public Use
  Company Number: CHPA2014US001076

PATIENT
  Sex: Male

DRUGS (1)
  1. BUCKLEY^S CHEST CONGESTION [Suspect]
     Dosage: UNK
     Route: 048

REACTIONS (1)
  - Feeling abnormal [Not Recovered/Not Resolved]
